FAERS Safety Report 7406195-X (Version None)
Quarter: 2011Q2

REPORT INFORMATION
  Report Type: 
  Country: None (occurrence: None)
  Receive Date: 20110411
  Receipt Date: 20110406
  Transmission Date: 20111010
  Serious: Yes (Life-Threatening)
  Sender: FDA-Public Use
  Company Number: US-ASTRAZENECA-2011SE19543

PATIENT
  Age: 48 Year
  Sex: Male
  Weight: 93 kg

DRUGS (10)
  1. OXYCONTIN [Concomitant]
  2. LORTAB [Concomitant]
     Indication: PAIN
     Dosage: AS NEEDED
  3. DITROPAN [Concomitant]
  4. PHENERGAN HCL [Concomitant]
     Dosage: AS NEEDED
  5. ASPIRIN [Concomitant]
  6. AMBIEN [Concomitant]
     Indication: SLEEP DISORDER
  7. PRILOSEC [Suspect]
     Indication: GASTROOESOPHAGEAL REFLUX DISEASE
     Route: 048
  8. SINGULAIR [Concomitant]
  9. NEXIUM [Suspect]
     Indication: GASTROOESOPHAGEAL REFLUX DISEASE
     Route: 048
     Dates: start: 20070101
  10. XANAX [Concomitant]
     Indication: PAIN

REACTIONS (5)
  - JOINT SPRAIN [None]
  - PYREXIA [None]
  - BLOOD URINE [None]
  - SEPSIS [None]
  - DRUG INEFFECTIVE [None]
